FAERS Safety Report 21620293 (Version 1)
Quarter: 2022Q4

REPORT INFORMATION
  Report Type: Spontaneous
  Country: DE (occurrence: DE)
  Receive Date: 20221121
  Receipt Date: 20221121
  Transmission Date: 20230113
  Serious: Yes (Other)
  Sender: FDA-Public Use
  Company Number: DE-ROCHE-3181354

PATIENT
  Sex: Female

DRUGS (9)
  1. BENDAMUSTINE [Suspect]
     Active Substance: BENDAMUSTINE
     Indication: Diffuse large B-cell lymphoma
     Dosage: WITH RITUXIMAB AND POLATUZUMAB
     Dates: start: 20220501, end: 20220611
  2. LENALIDOMIDE [Suspect]
     Active Substance: LENALIDOMIDE
     Indication: Diffuse large B-cell lymphoma
     Dates: start: 20220701, end: 20220818
  3. GEMCITABINE [Suspect]
     Active Substance: GEMCITABINE
     Indication: Diffuse large B-cell lymphoma
     Dosage: WITH RITUXIMAB
     Dates: start: 20220301, end: 20220401
  4. CISPLATIN [Suspect]
     Active Substance: CISPLATIN
     Indication: Diffuse large B-cell lymphoma
     Dosage: WITH RITUXIMAB
     Dates: start: 20220301, end: 20220401
  5. RITUXIMAB [Suspect]
     Active Substance: RITUXIMAB
     Indication: Diffuse large B-cell lymphoma
     Dosage: WITH GDP
     Dates: start: 20220301, end: 20220401
  6. RITUXIMAB [Suspect]
     Active Substance: RITUXIMAB
     Dosage: WITH POLATUZUMAB AND BENDAMUSTINE
     Dates: start: 20220501, end: 20220611
  7. DEXAMETHASONE [Suspect]
     Active Substance: DEXAMETHASONE
     Indication: Diffuse large B-cell lymphoma
     Dosage: WITH RITUXIMAB
     Dates: start: 20220301, end: 20220401
  8. TAFASITAMAB-CXIX [Suspect]
     Active Substance: TAFASITAMAB-CXIX
     Indication: Diffuse large B-cell lymphoma
     Dates: start: 20220701, end: 20220818
  9. POLATUZUMAB VEDOTIN [Suspect]
     Active Substance: POLATUZUMAB VEDOTIN
     Indication: Diffuse large B-cell lymphoma
     Dosage: WITH RITUXIMAB AND BENDAMUSTINE
     Dates: start: 20220501, end: 20220611

REACTIONS (1)
  - Lymphoma [Not Recovered/Not Resolved]
